FAERS Safety Report 25748363 (Version 2)
Quarter: 2025Q3

REPORT INFORMATION
  Report Type: Spontaneous
  Country: US (occurrence: US)
  Receive Date: 20250902
  Receipt Date: 20250911
  Transmission Date: 20251021
  Serious: Yes (Other)
  Sender: ABBVIE
  Company Number: US-ABBVIE-6436052

PATIENT
  Age: 41 Year
  Sex: Female

DRUGS (1)
  1. UBRELVY [Suspect]
     Active Substance: UBROGEPANT
     Indication: Migraine
     Route: 048
     Dates: start: 2024

REACTIONS (2)
  - Blindness [Unknown]
  - Glaucoma [Unknown]

NARRATIVE: CASE EVENT DATE: 20250101
